FAERS Safety Report 14335349 (Version 3)
Quarter: 2018Q1

REPORT INFORMATION
  Report Type: Report from Study
  Country: US (occurrence: US)
  Receive Date: 20171229
  Receipt Date: 20180115
  Transmission Date: 20180509
  Serious: No
  Sender: FDA-Public Use
  Company Number: PHEH2017US041899

PATIENT
  Sex: Male

DRUGS (2)
  1. ENTRESTO [Suspect]
     Active Substance: SACUBITRIL\VALSARTAN
     Dosage: 1 DF (24/26 MG, HALF TABLET), QD
     Route: 048
  2. ENTRESTO [Suspect]
     Active Substance: SACUBITRIL\VALSARTAN
     Indication: PRODUCT USED FOR UNKNOWN INDICATION
     Dosage: 0.5 DF (24/26 MG, HALF TABLET), BID
     Route: 048

REACTIONS (4)
  - Drug prescribing error [Unknown]
  - Inappropriate schedule of drug administration [Unknown]
  - Hypotension [Unknown]
  - Wrong technique in product usage process [Unknown]
